FAERS Safety Report 4404484-4 (Version None)
Quarter: 2004Q3

REPORT INFORMATION
  Report Type: 
  Country: None (occurrence: None)
  Receive Date: 20040720
  Receipt Date: 20040705
  Transmission Date: 20050211
  Serious: Yes (Hospitalization)
  Sender: FDA-Public Use
  Company Number: 200861

PATIENT
  Age: 51 Year
  Sex: Male
  Weight: 113.3993 kg

DRUGS (8)
  1. AVONEX [Suspect]
     Indication: MULTIPLE SCLEROSIS
     Dosage: 30 MCG QW IM
     Route: 030
     Dates: start: 20010101, end: 20030101
  2. AVONEX [Suspect]
     Indication: MULTIPLE SCLEROSIS
     Dosage: 30 MCG QW IM
     Route: 030
     Dates: start: 20030101
  3. BACLOFEN [Concomitant]
  4. BEXTRA [Concomitant]
  5. PROZAC [Concomitant]
  6. DETROL [Concomitant]
  7. NOVANTRONE ^LEDERLE^ [Concomitant]
  8. MULTIVITAMIN [Concomitant]

REACTIONS (6)
  - CONCUSSION [None]
  - DIZZINESS [None]
  - FALL [None]
  - INFLUENZA LIKE ILLNESS [None]
  - NAUSEA [None]
  - SKIN LACERATION [None]
